FAERS Safety Report 15863705 (Version 4)
Quarter: 2023Q2

REPORT INFORMATION
  Report Type: Spontaneous
  Country: US (occurrence: None)
  Receive Date: 20190124
  Receipt Date: 20230526
  Transmission Date: 20230722
  Serious: Yes (Other)
  Sender: FDA-Public Use
  Company Number: 2018SF33399

PATIENT
  Sex: Female
  Weight: 68 kg

DRUGS (49)
  1. NEXIUM [Suspect]
     Active Substance: ESOMEPRAZOLE MAGNESIUM
     Indication: Gastrooesophageal reflux disease
     Route: 048
     Dates: start: 2009, end: 2013
  2. NEXIUM [Suspect]
     Active Substance: ESOMEPRAZOLE MAGNESIUM
     Indication: Gastrooesophageal reflux disease
     Route: 048
     Dates: start: 2006
  3. OMEPRAZOLE [Suspect]
     Active Substance: OMEPRAZOLE
     Indication: Gastrooesophageal reflux disease
     Dosage: GENERIC
  4. PRILOSEC OTC [Suspect]
     Active Substance: OMEPRAZOLE MAGNESIUM
     Indication: Gastrooesophageal reflux disease
     Route: 048
     Dates: start: 2009, end: 2013
  5. CEFCLOR [Concomitant]
  6. AMMONIUM CHLORIDE\DEXTROMETHORPHAN\SODIUM CITRATE [Concomitant]
     Active Substance: AMMONIUM CHLORIDE\DEXTROMETHORPHAN\SODIUM CITRATE
  7. LORATADINE [Concomitant]
     Active Substance: LORATADINE
  8. TRIAMTERENE AND HYDROCHLOROTHIAZIDE [Concomitant]
     Active Substance: HYDROCHLOROTHIAZIDE\TRIAMTERENE
  9. CEPHALEXIN [Concomitant]
     Active Substance: CEPHALEXIN
  10. MAPAP [Concomitant]
     Active Substance: ACETAMINOPHEN
  11. ETODOLAC [Concomitant]
     Active Substance: ETODOLAC
  12. NITROGLYCERIN [Concomitant]
     Active Substance: NITROGLYCERIN
  13. NIFEDIPINE [Concomitant]
     Active Substance: NIFEDIPINE
  14. SERTRALINE [Concomitant]
     Active Substance: SERTRALINE HYDROCHLORIDE
  15. LISINOPRIL [Concomitant]
     Active Substance: LISINOPRIL
  16. TRAMADOL [Concomitant]
     Active Substance: TRAMADOL
  17. PROCHLORPERAZINE [Concomitant]
     Active Substance: PROCHLORPERAZINE
  18. CARTIA [Concomitant]
  19. THEOPHYLLINE [Concomitant]
     Active Substance: THEOPHYLLINE
  20. METOCLOPRAMIDE [Concomitant]
     Active Substance: METOCLOPRAMIDE
  21. ALPHAGAN P [Concomitant]
     Active Substance: BRIMONIDINE TARTRATE
  22. CARVEDILOL [Concomitant]
     Active Substance: CARVEDILOL
  23. ACTOS [Concomitant]
     Active Substance: PIOGLITAZONE HYDROCHLORIDE
  24. LANTUS [Concomitant]
     Active Substance: INSULIN GLARGINE
  25. NOVOLIN NOS [Concomitant]
     Active Substance: INSULIN HUMAN
  26. VALTREX [Concomitant]
     Active Substance: VALACYCLOVIR HYDROCHLORIDE
  27. ADVAIR HFA [Concomitant]
     Active Substance: FLUTICASONE PROPIONATE\SALMETEROL XINAFOATE
  28. SULFACETAMIDE SODIUM [Concomitant]
     Active Substance: SULFACETAMIDE SODIUM
  29. MYTUSSIN [Concomitant]
  30. CEFACLOR [Concomitant]
     Active Substance: CEFACLOR
  31. TRIAMTERENE [Concomitant]
     Active Substance: TRIAMTERENE
  32. NAPROXEN [Concomitant]
     Active Substance: NAPROXEN
  33. ERYTHROMYCIN [Concomitant]
     Active Substance: ERYTHROMYCIN
  34. GLYBURIDE [Concomitant]
     Active Substance: GLYBURIDE
  35. GLIMEPIRIDE [Concomitant]
     Active Substance: GLIMEPIRIDE
  36. CIPROFLOXACIN [Concomitant]
     Active Substance: CIPROFLOXACIN
  37. DORZOLAMIDE [Concomitant]
     Active Substance: DORZOLAMIDE
  38. DIPHENOXYLATE [Concomitant]
     Active Substance: DIPHENOXYLATE
  39. HUMALOG [Concomitant]
     Active Substance: INSULIN LISPRO
  40. EXFORGE [Concomitant]
     Active Substance: AMLODIPINE BESYLATE\VALSARTAN
  41. NABUMETONE [Concomitant]
     Active Substance: NABUMETONE
  42. ROPINIROLE [Concomitant]
     Active Substance: ROPINIROLE
  43. AZITHROMYCIN [Concomitant]
     Active Substance: AZITHROMYCIN
  44. GABAPENTIN [Concomitant]
     Active Substance: GABAPENTIN
  45. CALCIUM CARBONATE\ERGOCALCIFEROL\RETINOL [Concomitant]
     Active Substance: CALCIUM CARBONATE\ERGOCALCIFEROL\RETINOL
  46. PATADAY [Concomitant]
     Active Substance: OLOPATADINE HYDROCHLORIDE
  47. ONGLYZA [Concomitant]
     Active Substance: SAXAGLIPTIN HYDROCHLORIDE
  48. FERROUS SULFATE [Concomitant]
     Active Substance: FERROUS SULFATE
  49. VITAMIN D [Concomitant]
     Active Substance: VITAMIN D NOS

REACTIONS (4)
  - Acute kidney injury [Unknown]
  - Chronic kidney disease [Not Recovered/Not Resolved]
  - Renal failure [Unknown]
  - Nephropathy [Unknown]
